FAERS Safety Report 17129155 (Version 1)
Quarter: 2019Q4

REPORT INFORMATION
  Report Type: Report from Study
  Country: US (occurrence: US)
  Receive Date: 20191209
  Receipt Date: 20191209
  Transmission Date: 20200122
  Serious: Yes (Hospitalization)
  Sender: FDA-Public Use
  Company Number: US-EISAI MEDICAL RESEARCH-EC-2019-066403

PATIENT
  Age: 22 Year
  Sex: Male
  Weight: 55.7 kg

DRUGS (2)
  1. EVEROLIMUS. [Suspect]
     Active Substance: EVEROLIMUS
     Indication: RHABDOMYOSARCOMA
     Route: 048
     Dates: start: 20191028, end: 20191124
  2. LENVATINIB [Suspect]
     Active Substance: LENVATINIB
     Indication: RHABDOMYOSARCOMA
     Route: 048
     Dates: start: 20191028, end: 20191124

REACTIONS (2)
  - Alanine aminotransferase increased [Recovering/Resolving]
  - Aspartate aminotransferase increased [Recovering/Resolving]

NARRATIVE: CASE EVENT DATE: 20191129
